FAERS Safety Report 6403463-5 (Version None)
Quarter: 2009Q4

REPORT INFORMATION
  Report Type: 
  Country: None (occurrence: None)
  Receive Date: 20091015
  Receipt Date: 20091015
  Transmission Date: 20100525
  Serious: Yes (Other)
  Sender: FDA-Public Use
  Company Number: None

PATIENT
  Sex: Female
  Weight: 61.2356 kg

DRUGS (1)
  1. VITAMIN D [Suspect]
     Indication: SUPPLEMENTATION THERAPY
     Dosage: 1 TABLET DAILY PO
     Route: 048

REACTIONS (1)
  - BLOOD 25-HYDROXYCHOLECALCIFEROL INCREASED [None]
